FAERS Safety Report 5571823-0 (Version None)
Quarter: 2007Q4

REPORT INFORMATION
  Report Type: 
  Country: None (occurrence: None)
  Receive Date: 20071221
  Receipt Date: 20071218
  Transmission Date: 20080405
  Serious: Yes (Hospitalization)
  Sender: FDA-Public Use
  Company Number: B0500676A

PATIENT
  Age: 64 Year
  Sex: Female

DRUGS (5)
  1. ZOPHREN [Suspect]
     Indication: PREMEDICATION
     Dosage: 8MG PER DAY
     Route: 042
     Dates: start: 20070327, end: 20070327
  2. ELOXATIN [Suspect]
     Indication: OVARIAN CANCER
     Route: 042
  3. GEMZAR [Suspect]
     Indication: OVARIAN CANCER
     Dosage: 1600MG PER DAY
     Route: 042
     Dates: start: 20070327, end: 20070327
  4. PLITICAN [Suspect]
     Indication: PREMEDICATION
     Dosage: 50MG PER DAY
     Route: 042
     Dates: start: 20070327, end: 20070327
  5. SOLU-MEDROL [Suspect]
     Indication: PREMEDICATION
     Dosage: 60MG PER DAY
     Route: 042
     Dates: start: 20070327, end: 20070327

REACTIONS (5)
  - CHILLS [None]
  - NAUSEA [None]
  - PARAESTHESIA [None]
  - TREMOR [None]
  - VOMITING [None]
